FAERS Safety Report 23567384 (Version 9)
Quarter: 2024Q3

REPORT INFORMATION
  Report Type: Spontaneous
  Country: US (occurrence: US)
  Receive Date: 20240226
  Receipt Date: 20240726
  Transmission Date: 20241016
  Serious: No
  Sender: PFIZER
  Company Number: US-PFIZER INC-PV202400025405

PATIENT
  Age: 68 Year
  Sex: Female
  Weight: 63.2 kg

DRUGS (4)
  1. BRAFTOVI [Suspect]
     Active Substance: ENCORAFENIB
     Indication: Cholangiocarcinoma
     Dosage: 450 MG, DAILY (6 CAPSULES OF 75 MG, DAILY)
     Route: 048
     Dates: start: 20240208
  2. BRAFTOVI [Suspect]
     Active Substance: ENCORAFENIB
     Indication: Metastases to bone
     Dosage: 450 MG, DAILY (6 CAPSULES OF 75 MG, DAILY)
     Route: 048
     Dates: start: 20240227
  3. MEKTOVI [Suspect]
     Active Substance: BINIMETINIB
     Indication: Cholangiocarcinoma
     Dosage: 45 MG, 2X/DAY (3 TABLETS OF 15 MG, 2X/DAY)
     Route: 048
     Dates: start: 20240208
  4. MEKTOVI [Suspect]
     Active Substance: BINIMETINIB
     Indication: Metastases to bone
     Dosage: 45 MG, 2X/DAY (3 TABLETS OF 15 MG, 2X/DAY)
     Route: 048
     Dates: start: 20240208

REACTIONS (10)
  - Neoplasm progression [Unknown]
  - Weight decreased [Unknown]
  - Decreased appetite [Unknown]
  - Nausea [Unknown]
  - Pruritus [Unknown]
  - Arthralgia [Unknown]
  - Back pain [Unknown]
  - Fatigue [Unknown]
  - Bone pain [Unknown]
  - Off label use [Unknown]
